FAERS Safety Report 10009815 (Version 1)
Quarter: 2014Q1

REPORT INFORMATION
  Report Type: Spontaneous
  Country: US (occurrence: US)
  Receive Date: 20140312
  Receipt Date: 20140312
  Transmission Date: 20141002
  Serious: No
  Sender: FDA-Public Use
  Company Number: US-INCYTE CORPORATION-2013IN000162

PATIENT
  Age: 61 Year
  Sex: Female
  Weight: 48.07 kg

DRUGS (4)
  1. JAKAFI [Suspect]
     Dosage: 20 MG, BID
     Route: 048
  2. VITAMIN B COMPLEX [Concomitant]
  3. FOLIC ACID [Concomitant]
  4. AGRYLIN [Concomitant]

REACTIONS (1)
  - Rash pruritic [Unknown]
